FAERS Safety Report 9240235 (Version 2)
Quarter: 2013Q2

REPORT INFORMATION
  Report Type: Spontaneous
  Country: US (occurrence: None)
  Receive Date: 20121109
  Receipt Date: 20130206
  Transmission Date: 20140414
  Serious: Yes (Other)
  Sender: FDA-Public Use
  Company Number: AUR-APL-2012-03668

PATIENT
  Age: 73 Year
  Sex: Female
  Weight: 90.7 kg

DRUGS (2)
  1. VENLAFAXINE [Suspect]
     Indication: NEUROPATHY PERIPHERAL
     Route: 048
     Dates: start: 2010
  2. ARMOUR THYROID (THYROID) [Concomitant]
     Dates: start: 2010

REACTIONS (1)
  - Cataract [None]
